FAERS Safety Report 18593075 (Version 1)
Quarter: 2020Q4

REPORT INFORMATION
  Report Type: Spontaneous
  Country: US (occurrence: US)
  Receive Date: 20201209
  Receipt Date: 20201209
  Transmission Date: 20210114
  Serious: No
  Sender: FDA-Public Use
  Company Number: US-BION-008662

PATIENT
  Age: 61 Year
  Sex: Female

DRUGS (2)
  1. ALENDRONIC ACID [Concomitant]
     Active Substance: ALENDRONIC ACID
  2. BIONPHARMA^S VITAMIN D 50000 IU [Suspect]
     Active Substance: ERGOCALCIFEROL
     Indication: OSTEOPOROSIS
     Dosage: STRENGTH 50,000 IU

REACTIONS (1)
  - Back pain [Unknown]
